FAERS Safety Report 5060041-0 (Version None)
Quarter: 2006Q3

REPORT INFORMATION
  Report Type: 
  Country: None (occurrence: None)
  Receive Date: 20060719
  Receipt Date: 20060710
  Transmission Date: 20061208
  Serious: Yes (Other)
  Sender: FDA-Public Use
  Company Number: CHPA2006US06770

PATIENT
  Age: 33 Year
  Sex: Female
  Weight: 54.4316 kg

DRUGS (2)
  1. NICOTINE [Suspect]
     Indication: SMOKING CESSATION THERAPY
     Dosage: 1 PATCH DAILY  DURING DAYTIME TRANSDERMAL
     Route: 062
     Dates: start: 20060630, end: 20060707
  2. NICOTINE [Suspect]
     Indication: SMOKING CESSATION THERAPY
     Dosage: 1 PATCH DAILY  DURING DAYTIME TRANSDERMAL
     Route: 062
     Dates: start: 20060709, end: 20060710

REACTIONS (4)
  - GLOSSODYNIA [None]
  - NIGHTMARE [None]
  - SWOLLEN TONGUE [None]
  - TONGUE ULCERATION [None]
